FAERS Safety Report 23480911 (Version 6)
Quarter: 2024Q1

REPORT INFORMATION
  Report Type: Spontaneous
  Country: GB (occurrence: GB)
  Receive Date: 20240205
  Receipt Date: 20240319
  Transmission Date: 20240410
  Serious: Yes (Other)
  Sender: FDA-Public Use
  Company Number: None

PATIENT
  Age: 38 Year
  Sex: Male
  Weight: 104 kg

DRUGS (28)
  1. AMLODIPINE [Suspect]
     Active Substance: AMLODIPINE BESYLATE
     Indication: Blood cholesterol increased
     Dosage: UNK
     Route: 048
  2. AMLODIPINE [Suspect]
     Active Substance: AMLODIPINE BESYLATE
     Indication: Depression
  3. AMLODIPINE [Suspect]
     Active Substance: AMLODIPINE BESYLATE
     Indication: Hypertension
  4. AMLODIPINE [Suspect]
     Active Substance: AMLODIPINE BESYLATE
     Dosage: UNK
  5. AMLODIPINE [Suspect]
     Active Substance: AMLODIPINE BESYLATE
     Dosage: UNK
  6. FLUOXETINE [Suspect]
     Active Substance: FLUOXETINE HYDROCHLORIDE
     Indication: Depression
     Dosage: UNK
     Route: 065
  7. FLUOXETINE [Suspect]
     Active Substance: FLUOXETINE HYDROCHLORIDE
     Indication: Hypertension
     Dosage: UNK
     Route: 065
  8. FLUOXETINE [Suspect]
     Active Substance: FLUOXETINE HYDROCHLORIDE
     Indication: Blood cholesterol increased
     Dosage: UNK
     Route: 065
  9. AMLODIPINE BESYLATE [Suspect]
     Active Substance: AMLODIPINE BESYLATE
     Indication: Hypercholesterolaemia
     Dosage: UNK
     Route: 048
  10. AMLODIPINE BESYLATE [Suspect]
     Active Substance: AMLODIPINE BESYLATE
     Indication: Hypertension
  11. AMLODIPINE BESYLATE [Suspect]
     Active Substance: AMLODIPINE BESYLATE
     Indication: Blood cholesterol increased
  12. AMLODIPINE BESYLATE [Suspect]
     Active Substance: AMLODIPINE BESYLATE
     Indication: Depression
  13. LERCANIDIPINE [Suspect]
     Active Substance: LERCANIDIPINE
     Indication: Hypertension
     Dosage: UNK
     Route: 065
  14. LERCANIDIPINE [Suspect]
     Active Substance: LERCANIDIPINE
     Indication: Blood cholesterol increased
     Dosage: UNK
  15. LERCANIDIPINE [Suspect]
     Active Substance: LERCANIDIPINE
     Indication: Depression
     Dosage: UNK
  16. LERCANIDIPINE [Suspect]
     Active Substance: LERCANIDIPINE
     Indication: Blood cholesterol increased
  17. HYRIMOZ [Suspect]
     Active Substance: ADALIMUMAB-ADAZ
     Indication: Psoriasis
     Dosage: 80 MILLIGRAM (WEEK 0)
     Route: 058
     Dates: start: 20231004, end: 20231025
  18. HYRIMOZ [Suspect]
     Active Substance: ADALIMUMAB-ADAZ
     Dosage: 40 MILLIGRAM (WEEK 1)
     Route: 058
     Dates: start: 20231004, end: 20231025
  19. LERCANIDIPINE HYDROCHLORIDE [Suspect]
     Active Substance: LERCANIDIPINE HYDROCHLORIDE
     Indication: Product used for unknown indication
     Dosage: UNK
     Route: 065
  20. SIMVASTATIN [Suspect]
     Active Substance: SIMVASTATIN
     Indication: Blood cholesterol increased
     Dosage: UNK
     Route: 065
  21. SIMVASTATIN [Suspect]
     Active Substance: SIMVASTATIN
     Indication: Depression
     Dosage: UNK
     Route: 065
  22. SIMVASTATIN [Suspect]
     Active Substance: SIMVASTATIN
     Indication: Hypertension
  23. SIMVASTATIN [Suspect]
     Active Substance: SIMVASTATIN
  24. SIMVASTATIN [Suspect]
     Active Substance: SIMVASTATIN
     Route: 048
  25. SIMVASTATIN [Suspect]
     Active Substance: SIMVASTATIN
  26. SIMVASTATIN [Suspect]
     Active Substance: SIMVASTATIN
  27. SIMVASTATIN [Suspect]
     Active Substance: SIMVASTATIN
     Dosage: UNK
  28. SIMVASTATIN [Suspect]
     Active Substance: SIMVASTATIN
     Dosage: UNK

REACTIONS (2)
  - Dermatitis exfoliative generalised [Unknown]
  - Rubber sensitivity [Unknown]
